FAERS Safety Report 9264996 (Version 2)
Quarter: 2013Q2

REPORT INFORMATION
  Report Type: Spontaneous
  Country: CA (occurrence: CA)
  Receive Date: 20130501
  Receipt Date: 20130619
  Transmission Date: 20140414
  Serious: Yes (Hospitalization)
  Sender: FDA-Public Use
  Company Number: CA-ELI_LILLY_AND_COMPANY-CA201304007315

PATIENT
  Age: 80 Year
  Sex: Female

DRUGS (7)
  1. FORTEO [Suspect]
     Indication: OSTEOPOROSIS
     Dosage: 20 UG, QD
     Route: 058
     Dates: start: 20110503, end: 20120704
  2. FORTEO [Suspect]
     Dosage: 20 UG, QD
     Route: 058
     Dates: start: 20130409
  3. SYNTHROID [Concomitant]
  4. VITALUX [Concomitant]
  5. GLUCOSAMINE [Concomitant]
  6. LIPITOR [Concomitant]
  7. PREDNISONE [Concomitant]

REACTIONS (1)
  - Anti-VGKC antibody [Not Recovered/Not Resolved]
